FAERS Safety Report 16273326 (Version 2)
Quarter: 2019Q3

REPORT INFORMATION
  Report Type: Spontaneous
  Country: US (occurrence: US)
  Receive Date: 20190503
  Receipt Date: 20190805
  Transmission Date: 20191004
  Serious: No
  Sender: FDA-Public Use
  Company Number: US-RADIUS HEALTH INC.-2019US000817

PATIENT
  Age: 73 Year
  Sex: Female

DRUGS (1)
  1. TYMLOS [Suspect]
     Active Substance: ABALOPARATIDE
     Indication: OSTEOPOROSIS POSTMENOPAUSAL
     Dosage: 80 MCG, QD
     Route: 058
     Dates: start: 20190307

REACTIONS (5)
  - Flatulence [Recovered/Resolved]
  - Pain in extremity [Not Recovered/Not Resolved]
  - Dizziness [Recovered/Resolved]
  - Nausea [Unknown]
  - Muscular weakness [Unknown]

NARRATIVE: CASE EVENT DATE: 20190307
